FAERS Safety Report 17157825 (Version 1)
Quarter: 2019Q4

REPORT INFORMATION
  Report Type: Spontaneous
  Country: US (occurrence: US)
  Receive Date: 20191216
  Receipt Date: 20191216
  Transmission Date: 20200122
  Serious: Yes (Life-Threatening, Hospitalization, Other)
  Sender: FDA-Public Use
  Company Number: US-GLENMARK PHARMACEUTICALS-2019GMK044837

PATIENT
  Age: 67 Year
  Sex: Male

DRUGS (3)
  1. LEVOCETIRIZINE [Suspect]
     Active Substance: LEVOCETIRIZINE
     Indication: RHINITIS ALLERGIC
     Dosage: 5 MG, OD
     Route: 065
  2. PARACETAMOL [Concomitant]
     Active Substance: ACETAMINOPHEN
     Indication: PRODUCT USED FOR UNKNOWN INDICATION
     Dosage: UNK, PRN (AS NECESSARY)
     Route: 065
  3. ESOMEPRAZOLE. [Concomitant]
     Active Substance: ESOMEPRAZOLE MAGNESIUM
     Indication: PRODUCT USED FOR UNKNOWN INDICATION
     Dosage: UNK, PRN (AS NECESSARY)
     Route: 065

REACTIONS (4)
  - Idiosyncratic drug reaction [Recovering/Resolving]
  - Periportal oedema [Recovering/Resolving]
  - Drug-induced liver injury [Recovering/Resolving]
  - Hepatomegaly [Recovering/Resolving]
